FAERS Safety Report 13965586 (Version 1)
Quarter: 2017Q3

REPORT INFORMATION
  Report Type: Spontaneous
  Country: BE (occurrence: BE)
  Receive Date: 20170913
  Receipt Date: 20170913
  Transmission Date: 20171128
  Serious: Yes (Hospitalization)
  Sender: FDA-Public Use
  Company Number: BE-BAYER-2017-174143

PATIENT
  Age: 45 Year
  Sex: Male

DRUGS (1)
  1. ULTRAVIST [Suspect]
     Active Substance: IOPROMIDE
     Indication: COMPUTERISED TOMOGRAM ABDOMEN
     Dosage: UNK
     Dates: start: 201708

REACTIONS (5)
  - Lip swelling [None]
  - Eyelid thickening [None]
  - Swollen tongue [None]
  - Tachycardia [None]
  - Contrast media allergy [None]

NARRATIVE: CASE EVENT DATE: 20170825
